FAERS Safety Report 9949407 (Version 1)
Quarter: 2014Q1

REPORT INFORMATION
  Report Type: Spontaneous
  Country: US (occurrence: None)
  Receive Date: 20140122
  Receipt Date: 20140122
  Transmission Date: 20141002
  Serious: Yes (Other)
  Sender: FDA-Public Use
  Company Number: AEGR000184

PATIENT
  Age: 76 Year
  Sex: Female
  Weight: 64.9 kg

DRUGS (6)
  1. JUXTAPID [Suspect]
     Indication: TYPE IIA HYPERLIPIDAEMIA
     Route: 048
     Dates: start: 20131013, end: 20131017
  2. VITAMIN D3 (COLECALCIFEROL) [Concomitant]
  3. ZYRTEC (CETIRIZINE HYDROCHLORIDE) [Concomitant]
  4. CRANBERRY (CRANBERRY) [Concomitant]
  5. MULTIVITAMIN (VITAMINS NOS) [Concomitant]
  6. SPIRIVA (TIOTROPIUM BROMIDE) (TIOTROPIUM BROMIDE) [Concomitant]

REACTIONS (1)
  - Headache [None]
